FAERS Safety Report 6217549-1 (Version None)
Quarter: 2009Q2

REPORT INFORMATION
  Report Type: 
  Country: None (occurrence: None)
  Receive Date: 20090608
  Receipt Date: 20090206
  Transmission Date: 20091009
  Serious: No
  Sender: FDA-Public Use
  Company Number: A0767478A

PATIENT
  Sex: Female

DRUGS (3)
  1. WELLBUTRIN XL [Suspect]
     Indication: DEPRESSION
     Dosage: 300MG PER DAY
  2. VITAMIN TAB [Concomitant]
  3. ANTIHYPERTENSIVES [Concomitant]

REACTIONS (2)
  - DRUG EXPOSURE DURING PREGNANCY [None]
  - LIVE BIRTH [None]
